FAERS Safety Report 12341107 (Version 1)
Quarter: 2016Q2

REPORT INFORMATION
  Report Type: Spontaneous
  Country: FR (occurrence: FR)
  Receive Date: 20160506
  Receipt Date: 20160506
  Transmission Date: 20160815
  Serious: Yes (Hospitalization)
  Sender: FDA-Public Use
  Company Number: FR-ROCHE-1750919

PATIENT
  Age: 66 Year
  Sex: Male

DRUGS (11)
  1. AMETYCINE [Suspect]
     Active Substance: MITOMYCIN
     Indication: RECTAL CANCER METASTATIC
     Route: 042
     Dates: start: 20151006, end: 20160105
  2. FLUOROURACIL. [Concomitant]
     Active Substance: FLUOROURACIL
  3. CLOPIDOGREL [Concomitant]
     Active Substance: CLOPIDOGREL BISULFATE
  4. LABETALOL [Concomitant]
     Active Substance: LABETALOL\LABETALOL HYDROCHLORIDE
  5. REPAGLINIDE. [Concomitant]
     Active Substance: REPAGLINIDE
  6. ATORVASTATIN [Concomitant]
     Active Substance: ATORVASTATIN
  7. KARDEGIC [Concomitant]
     Active Substance: ASPIRIN LYSINE
  8. FOLINIC ACID [Concomitant]
     Active Substance: LEUCOVORIN
  9. XELODA [Suspect]
     Active Substance: CAPECITABINE
     Indication: RECTAL CANCER METASTATIC
     Route: 048
     Dates: start: 20151006, end: 201601
  10. IRINOTECAN [Concomitant]
     Active Substance: IRINOTECAN
  11. INNOHEP [Concomitant]
     Active Substance: TINZAPARIN SODIUM

REACTIONS (2)
  - Interstitial lung disease [Not Recovered/Not Resolved]
  - Pulmonary fibrosis [Not Recovered/Not Resolved]

NARRATIVE: CASE EVENT DATE: 201512
